FAERS Safety Report 24028149 (Version 1)
Quarter: 2024Q2

REPORT INFORMATION
  Report Type: Spontaneous
  Country: US (occurrence: US)
  Receive Date: 20240628
  Receipt Date: 20240628
  Transmission Date: 20240716
  Serious: No
  Sender: FDA-Public Use
  Company Number: US-ALKEM LABORATORIES LIMITED-US-ALKEM-2024-09143

PATIENT
  Age: 59 Year
  Sex: Male

DRUGS (4)
  1. CLOPIDOGREL [Suspect]
     Active Substance: CLOPIDOGREL BISULFATE
     Indication: Coronary artery stent removal
     Dosage: 75 MILLIGRAM
     Route: 065
  2. CLOPIDOGREL [Suspect]
     Active Substance: CLOPIDOGREL BISULFATE
     Indication: Dressler^s syndrome
  3. ASPIRIN [Suspect]
     Active Substance: ASPIRIN
     Indication: Coronary artery stent removal
     Dosage: 162 MILLIGRAM
     Route: 065
  4. ASPIRIN [Suspect]
     Active Substance: ASPIRIN
     Indication: Dressler^s syndrome

REACTIONS (2)
  - Haematoma [Unknown]
  - Post procedural haemorrhage [Unknown]
